FAERS Safety Report 8263391-X (Version None)
Quarter: 2012Q2

REPORT INFORMATION
  Report Type: 
  Country: None (occurrence: None)
  Receive Date: 20120405
  Receipt Date: 20120327
  Transmission Date: 20120825
  Serious: Yes (Hospitalization, Other)
  Sender: FDA-Public Use
  Company Number: US-ABBOTT-12P-163-0910167-00

PATIENT
  Age: 69 Year
  Sex: Female
  Weight: 54.934 kg

DRUGS (14)
  1. FOSAMAX [Concomitant]
     Indication: OSTEOPOROSIS
     Route: 048
  2. FLEXERIL [Concomitant]
     Indication: BACK PAIN
     Dosage: AT BEDTIME
     Route: 048
  3. ASPIRIN [Concomitant]
     Indication: CEREBROVASCULAR ACCIDENT
     Dosage: LOW DOSE; AT BEDTIME
     Route: 048
  4. AMBIEN [Concomitant]
     Indication: INSOMNIA
     Dosage: AT BEDTIME
     Route: 048
  5. MULTIVITAMIN WITH IRON AND CALCIUM [Concomitant]
     Indication: VITAMIN SUPPLEMENTATION
     Dosage: DAILY
     Route: 048
  6. PENTASA [Concomitant]
     Indication: CROHN'S DISEASE
  7. ZOCOR [Concomitant]
     Indication: BLOOD CHOLESTEROL INCREASED
     Route: 048
  8. LOMOTIL [Concomitant]
     Indication: ANTIDIARRHOEAL SUPPORTIVE CARE
     Dosage: UP TO 6 TABLETS DAILY
     Route: 048
  9. VITAMIN B COMPLEX WITH FOLIC ACID AND VITAMIN C [Concomitant]
     Indication: VITAMIN SUPPLEMENTATION
     Dosage: DAILY
     Route: 048
  10. VITAMIN D [Concomitant]
     Indication: VITAMIN SUPPLEMENTATION
     Route: 048
  11. PREDNISONE [Concomitant]
     Indication: CROHN'S DISEASE
     Route: 048
  12. HUMIRA [Suspect]
     Indication: CROHN'S DISEASE
     Dates: start: 20111103
  13. POTASSIUM CHLORIDE [Concomitant]
     Indication: MINERAL SUPPLEMENTATION
     Route: 048
  14. CALCIUM WITH VITAMIN D [Concomitant]
     Indication: MINERAL SUPPLEMENTATION
     Route: 048

REACTIONS (8)
  - DECUBITUS ULCER [None]
  - URINARY TRACT INFECTION [None]
  - CLOSTRIDIAL INFECTION [None]
  - JOINT ARTHROPLASTY [None]
  - SKIN ULCER [None]
  - STAPHYLOCOCCAL INFECTION [None]
  - BONE PAIN [None]
  - SPINAL COMPRESSION FRACTURE [None]
